FAERS Safety Report 23650300 (Version 1)
Quarter: 2024Q1

REPORT INFORMATION
  Report Type: Spontaneous
  Country: US (occurrence: None)
  Receive Date: 20240319
  Receipt Date: 20240319
  Transmission Date: 20240410
  Serious: Yes (Other)
  Sender: FDA-Public Use
  Company Number: US-ROCHE-3448299

PATIENT
  Age: 75 Year
  Sex: Male

DRUGS (2)
  1. VABYSMO [Suspect]
     Active Substance: FARICIMAB\FARICIMAB-SVOA
     Indication: Neovascular age-related macular degeneration
     Dosage: ONGOING: NO
     Route: 050
     Dates: start: 20230707, end: 20231020
  2. EYLEA [Concomitant]
     Active Substance: AFLIBERCEPT
     Indication: Neovascular age-related macular degeneration
     Route: 030

REACTIONS (2)
  - Endophthalmitis [Recovering/Resolving]
  - Hypopyon [Unknown]

NARRATIVE: CASE EVENT DATE: 20231021
